FAERS Safety Report 17651301 (Version 1)
Quarter: 2020Q2

REPORT INFORMATION
  Report Type: Spontaneous
  Country: US (occurrence: US)
  Receive Date: 20200409
  Receipt Date: 20200409
  Transmission Date: 20200713
  Serious: Yes (Other)
  Sender: FDA-Public Use
  Company Number: None

PATIENT
  Age: 40 Year
  Sex: Female
  Weight: 96.75 kg

DRUGS (5)
  1. VERAPMIL [Concomitant]
  2. EMGALITY [Suspect]
     Active Substance: GALCANEZUMAB-GNLM
     Indication: MIGRAINE
  3. ARMOUR THYROID [Concomitant]
     Active Substance: THYROID, PORCINE
  4. VITAMIN D [Concomitant]
     Active Substance: VITAMIN D NOS
  5. BIOTIN [Concomitant]
     Active Substance: BIOTIN

REACTIONS (2)
  - Self esteem decreased [None]
  - Alopecia [None]

NARRATIVE: CASE EVENT DATE: 20200301
